FAERS Safety Report 8556554-7 (Version None)
Quarter: 2012Q3

REPORT INFORMATION
  Report Type: 
  Country: None (occurrence: None)
  Receive Date: 20120801
  Receipt Date: 20120724
  Transmission Date: 20120928
  Serious: Yes (Hospitalization, Other)
  Sender: FDA-Public Use
  Company Number: US-SANOFI-AVENTIS-2011SA065119

PATIENT
  Age: 68 Year
  Sex: Female
  Weight: 52.3 kg

DRUGS (23)
  1. NEXIUM [Concomitant]
     Route: 048
  2. POTASSIUM [Concomitant]
     Indication: NUTRITIONAL SUPPORT
     Route: 048
  3. LISINOPRIL [Concomitant]
  4. VALSARTAN [Concomitant]
     Indication: BLOOD PRESSURE
     Route: 048
  5. ISOPROPYL ALCOHOL [Concomitant]
     Route: 061
  6. DOXYCYCLINE HYCLATE [Concomitant]
     Dates: start: 20110501
  7. GLIMEPIRIDE [Concomitant]
  8. DIFLUCAN [Concomitant]
     Indication: FUNGAL INFECTION
     Route: 048
  9. NEXIUM [Concomitant]
     Route: 048
  10. HYDROXYZINE HYDROCHLORIDE [Concomitant]
     Dates: start: 20110501
  11. PLAVIX [Suspect]
     Route: 048
     Dates: start: 20110429, end: 20110513
  12. PLAVIX [Suspect]
     Route: 048
     Dates: start: 20110429, end: 20110513
  13. ALLEGRA-D 12 HOUR [Concomitant]
     Route: 048
  14. ALL OTHER THERAPEUTIC PRODUCTS [Concomitant]
  15. ALBUTEROL SULATE [Concomitant]
     Indication: WHEEZING
  16. ALBUTEROL SULATE [Concomitant]
  17. ZIAC [Concomitant]
     Indication: HYPERTENSION
     Route: 048
  18. ALBUTEROL SULATE [Concomitant]
  19. CEFUROXIME [Concomitant]
     Route: 048
  20. ALL OTHER THERAPEUTIC PRODUCTS [Concomitant]
     Indication: PAIN
  21. ALL OTHER THERAPEUTIC PRODUCTS [Concomitant]
  22. PLAVIX [Suspect]
     Indication: ANTICOAGULANT THERAPY
     Route: 048
     Dates: start: 20110429, end: 20110513
  23. HYDROCODONE [Concomitant]
     Indication: PAIN
     Route: 048

REACTIONS (9)
  - BLISTER [None]
  - GANGRENE [None]
  - DIZZINESS [None]
  - DRUG HYPERSENSITIVITY [None]
  - SCAB [None]
  - SKIN BURNING SENSATION [None]
  - WEIGHT DECREASED [None]
  - PRURITUS [None]
  - LOCALISED INFECTION [None]
